FAERS Safety Report 5250758-7 (Version None)
Quarter: 2007Q1

REPORT INFORMATION
  Report Type: 
  Country: None (occurrence: None)
  Receive Date: 20070223
  Receipt Date: 20070208
  Transmission Date: 20070707
  Serious: Yes (Death, Life-Threatening)
  Sender: FDA-Public Use
  Company Number: 2007000262

PATIENT
  Age: 39 Year
  Sex: Female

DRUGS (1)
  1. TARCEVA [Suspect]
     Indication: METASTATIC BRONCHIAL CARCINOMA
     Dosage: 100 MG (QD), ORAL
     Route: 048
     Dates: start: 20060113, end: 20061126

REACTIONS (12)
  - ANAEMIA [None]
  - DIARRHOEA [None]
  - DISSEMINATED INTRAVASCULAR COAGULATION [None]
  - GASTROINTESTINAL DISORDER [None]
  - GENERALISED OEDEMA [None]
  - HYPOPROTEINAEMIA [None]
  - METASTASES TO BONE [None]
  - METASTASES TO LYMPH NODES [None]
  - MULTI-ORGAN FAILURE [None]
  - NECROSIS [None]
  - PLEURAL EFFUSION [None]
  - THROMBOCYTOPENIA [None]
